FAERS Safety Report 15229875 (Version 1)
Quarter: 2018Q3

REPORT INFORMATION
  Report Type: Spontaneous
  Country: US (occurrence: US)
  Receive Date: 20180802
  Receipt Date: 20180802
  Transmission Date: 20181010
  Serious: Yes (Other)
  Sender: FDA-Public Use
  Company Number: US-SUN PHARMACEUTICAL INDUSTRIES LTD-2018US-169287

PATIENT
  Age: 40 Year
  Sex: Male

DRUGS (15)
  1. LOPINAVIR/RITONAVIR [Suspect]
     Active Substance: LOPINAVIR\RITONAVIR
     Indication: ANTIRETROVIRAL THERAPY
  2. LOPINAVIR/RITONAVIR [Suspect]
     Active Substance: LOPINAVIR\RITONAVIR
     Indication: PNEUMOCYSTIS JIROVECII INFECTION
  3. SULPHAMETHOXAZOLE/TRIMETHOPRIM [Suspect]
     Active Substance: SULFAMETHOXAZOLE\TRIMETHOPRIM
     Indication: TOXOPLASMOSIS
  4. LAMIVUDINE. [Suspect]
     Active Substance: LAMIVUDINE
     Indication: PNEUMOCYSTIS JIROVECII INFECTION
  5. SULPHAMETHOXAZOLE/TRIMETHOPRIM [Suspect]
     Active Substance: SULFAMETHOXAZOLE\TRIMETHOPRIM
     Indication: PNEUMOCYSTIS JIROVECII INFECTION
     Dosage: UNK
     Route: 065
  6. SULPHAMETHOXAZOLE/TRIMETHOPRIM [Suspect]
     Active Substance: SULFAMETHOXAZOLE\TRIMETHOPRIM
     Indication: ANTIRETROVIRAL THERAPY
  7. LAMIVUDINE. [Suspect]
     Active Substance: LAMIVUDINE
     Indication: ANTIRETROVIRAL THERAPY
     Dosage: FIRST?LINE ANTIRETROVIRAL THERAPY
     Route: 065
  8. EFAVIRENZ. [Suspect]
     Active Substance: EFAVIRENZ
     Indication: ANTIRETROVIRAL THERAPY
     Dosage: FIRST?LINE ANTIRETROVIRAL THERAPY
     Route: 065
  9. STAVUDINE. [Suspect]
     Active Substance: STAVUDINE
     Indication: TOXOPLASMOSIS
  10. EFAVIRENZ. [Suspect]
     Active Substance: EFAVIRENZ
     Indication: PNEUMOCYSTIS JIROVECII INFECTION
  11. STAVUDINE. [Suspect]
     Active Substance: STAVUDINE
     Indication: PNEUMOCYSTIS JIROVECII INFECTION
  12. LOPINAVIR/RITONAVIR [Suspect]
     Active Substance: LOPINAVIR\RITONAVIR
     Indication: TOXOPLASMOSIS
  13. EFAVIRENZ. [Suspect]
     Active Substance: EFAVIRENZ
     Indication: TOXOPLASMOSIS
  14. STAVUDINE. [Suspect]
     Active Substance: STAVUDINE
     Indication: ANTIRETROVIRAL THERAPY
     Dosage: FIRST?LINE ANTIRETROVIRAL THERAPY
     Route: 065
  15. LAMIVUDINE. [Suspect]
     Active Substance: LAMIVUDINE
     Indication: TOXOPLASMOSIS

REACTIONS (1)
  - Lichenoid keratosis [Recovered/Resolved]
